FAERS Safety Report 24200588 (Version 1)
Quarter: 2024Q3

REPORT INFORMATION
  Report Type: Spontaneous
  Country: US (occurrence: US)
  Receive Date: 20240812
  Receipt Date: 20240812
  Transmission Date: 20241016
  Serious: No
  Sender: AYTU BIOSCIENCE
  Company Number: US-AYTU BIOPHARMA, INC.-2023AYT000032

PATIENT

DRUGS (2)
  1. COTEMPLA XR-ODT [Suspect]
     Active Substance: METHYLPHENIDATE
     Indication: Attention deficit hyperactivity disorder
     Dosage: 17.3 MILLIGRAM
     Route: 065
     Dates: start: 2023
  2. SERTRALINE [Concomitant]
     Active Substance: SERTRALINE HYDROCHLORIDE
     Indication: Product used for unknown indication
     Dosage: UNK
     Route: 065

REACTIONS (5)
  - Tongue discomfort [Not Recovered/Not Resolved]
  - Paraesthesia oral [Unknown]
  - Oral discomfort [Unknown]
  - Hypoaesthesia oral [Not Recovered/Not Resolved]
  - Product deposit [Unknown]

NARRATIVE: CASE EVENT DATE: 20230703
